FAERS Safety Report 8598143-4 (Version None)
Quarter: 2012Q3

REPORT INFORMATION
  Report Type: 
  Country: None (occurrence: None)
  Receive Date: 20120816
  Receipt Date: 20120809
  Transmission Date: 20120928
  Serious: Yes (Other)
  Sender: FDA-Public Use
  Company Number: JP-SANOFI-AVENTIS-2012SA000766

PATIENT
  Age: 65 Year
  Sex: Male
  Weight: 52.8 kg

DRUGS (25)
  1. LASIX [Suspect]
     Route: 042
     Dates: start: 20110623, end: 20110623
  2. LASIX [Suspect]
     Route: 042
     Dates: start: 20110624, end: 20110625
  3. THEOLONG [Concomitant]
     Route: 042
  4. PLATELETS [Concomitant]
     Dosage: DOSE:10 UNIT(S)
     Route: 042
  5. RED BLOOD CELLS, CONCENTRATED [Concomitant]
     Dosage: DOSE:2 UNIT(S)
     Route: 042
     Dates: end: 20110623
  6. AMINOACETIC ACID/PROLINE [Concomitant]
     Route: 048
     Dates: start: 20110622, end: 20110628
  7. LASIX [Suspect]
     Route: 042
     Dates: start: 20110626, end: 20110626
  8. LASIX [Suspect]
     Route: 042
     Dates: start: 20110626, end: 20110626
  9. LASIX [Suspect]
     Route: 042
     Dates: start: 20110627, end: 20110627
  10. RASURITEK INTRAVENOUS [Suspect]
     Route: 042
     Dates: start: 20110623, end: 20110627
  11. POLARAMINE [Concomitant]
     Indication: PROPHYLAXIS
     Route: 042
     Dates: start: 20110626, end: 20110626
  12. ITRACONAZOLE [Concomitant]
     Dosage: ITRIZOLE 1% SOLUTION 20ML DOSE:20 MILLIGRAM(S)/MILLILITRE
     Route: 048
     Dates: start: 20110623
  13. LEVOFLOXACIN [Concomitant]
     Route: 048
     Dates: start: 20110623, end: 20110624
  14. FLUTICASONE PROPIONATE [Concomitant]
  15. RED BLOOD CELLS, CONCENTRATED [Concomitant]
     Dosage: DOSE:2 UNIT(S)
     Route: 042
     Dates: start: 20110626, end: 20110627
  16. OMEPRAZOLE [Concomitant]
     Route: 042
     Dates: start: 20110603
  17. ALL OTHER THERAPEUTIC PRODUCTS [Concomitant]
     Indication: BACK PAIN
     Route: 048
  18. ACLACINON [Concomitant]
     Route: 042
     Dates: start: 20110801, end: 20110804
  19. SOLU-CORTEF [Concomitant]
     Route: 042
     Dates: start: 20110624, end: 20110624
  20. POLARAMINE [Concomitant]
     Route: 042
     Dates: start: 20110624, end: 20110624
  21. ACLACINON [Concomitant]
     Indication: ACUTE MYELOID LEUKAEMIA
     Route: 042
     Dates: start: 20110623, end: 20110626
  22. CYTARABINE [Concomitant]
     Indication: ACUTE MYELOID LEUKAEMIA
     Route: 042
     Dates: start: 20110623, end: 20110713
  23. SOLU-CORTEF [Concomitant]
     Indication: PROPHYLAXIS
     Route: 042
     Dates: start: 20110626, end: 20110626
  24. KYTRIL [Concomitant]
     Route: 042
     Dates: start: 20110623, end: 20110626
  25. CYTARABINE [Concomitant]
     Route: 042
     Dates: start: 20110801, end: 20110814

REACTIONS (4)
  - ATYPICAL MYCOBACTERIAL INFECTION [None]
  - OEDEMA [None]
  - PNEUMONIA [None]
  - BLOOD CALCIUM DECREASED [None]
